FAERS Safety Report 7099015-7 (Version None)
Quarter: 2010Q4

REPORT INFORMATION
  Report Type: 
  Country: None (occurrence: None)
  Receive Date: 20101112
  Receipt Date: 20101103
  Transmission Date: 20110411
  Serious: Yes (Hospitalization)
  Sender: FDA-Public Use
  Company Number: US-MYLANLABS-2010S1017085

PATIENT
  Age: 17 Year
  Sex: Female
  Weight: 77 kg

DRUGS (5)
  1. AMNESTEEM [Suspect]
     Indication: ACNE
     Route: 048
     Dates: start: 20100401
  2. AMNESTEEM [Suspect]
     Route: 048
  3. AMNESTEEM [Suspect]
     Route: 048
     Dates: end: 20100701
  4. ADDERALL XR 10 [Concomitant]
     Route: 048
  5. YAZ /01502501/ [Concomitant]

REACTIONS (3)
  - CRYING [None]
  - DEPRESSION [None]
  - SUICIDAL IDEATION [None]
